FAERS Safety Report 24551512 (Version 1)
Quarter: 2024Q4

REPORT INFORMATION
  Report Type: Spontaneous
  Country: ES (occurrence: ES)
  Receive Date: 20241026
  Receipt Date: 20241026
  Transmission Date: 20250114
  Serious: Yes (Death, Congenital Anomaly, Other)
  Sender: AUROBINDO
  Company Number: ES-AEMPS-1579321

PATIENT
  Sex: Male

DRUGS (1)
  1. ESLICARBAZEPINE ACETATE [Suspect]
     Active Substance: ESLICARBAZEPINE ACETATE
     Indication: Epilepsy
     Dosage: 400 MILLIGRAM, ONCE A DAY
     Route: 064
     Dates: start: 20240125, end: 20240228

REACTIONS (2)
  - Neural tube defect [Fatal]
  - Maternal exposure during pregnancy [Fatal]

NARRATIVE: CASE EVENT DATE: 20240125
